FAERS Safety Report 21556418 (Version 1)
Quarter: 2022Q4

REPORT INFORMATION
  Report Type: Spontaneous
  Country: US (occurrence: US)
  Receive Date: 20221104
  Receipt Date: 20221104
  Transmission Date: 20230113
  Serious: Yes (Other)
  Sender: FDA-Public Use
  Company Number: US-JNJFOC-20221061074

PATIENT
  Age: 1 Decade
  Sex: Female

DRUGS (1)
  1. CHILDRENS MOTRIN [Suspect]
     Active Substance: IBUPROFEN
     Indication: Pyrexia
     Dosage: 10 ML ONCE EVERY 3 MONTHS?PRODUCT START DATE: APPROX. A YEAR AGO
     Route: 065
     Dates: start: 2021

REACTIONS (4)
  - Delirium [Recovered/Resolved]
  - Hallucination, visual [Recovered/Resolved]
  - Seizure like phenomena [Recovered/Resolved]
  - Incorrect dose administered [Recovered/Resolved]

NARRATIVE: CASE EVENT DATE: 20210101
